FAERS Safety Report 7415895-7 (Version None)
Quarter: 2011Q2

REPORT INFORMATION
  Report Type: 
  Country: None (occurrence: None)
  Receive Date: 20110406
  Receipt Date: 20110322
  Transmission Date: 20111010
  Serious: Yes (Hospitalization, Other)
  Sender: FDA-Public Use
  Company Number: 2011MA002748

PATIENT
  Age: 27 Year
  Sex: Male

DRUGS (6)
  1. DIAZEPAM [Suspect]
     Indication: SUICIDE ATTEMPT
     Dosage: 80 MG;1X
  2. FLURAZEPAM [Concomitant]
  3. DEXKETOPROFEN [Concomitant]
  4. MIRTAZAPINE [Concomitant]
  5. IBUPROFEN [Concomitant]
  6. RUPATADINE [Concomitant]

REACTIONS (11)
  - MIOSIS [None]
  - SUICIDE ATTEMPT [None]
  - ASPIRATION BRONCHIAL [None]
  - RENAL FAILURE ACUTE [None]
  - STUPOR [None]
  - ANURIA [None]
  - ADJUSTMENT DISORDER [None]
  - DEPRESSED LEVEL OF CONSCIOUSNESS [None]
  - QRS AXIS ABNORMAL [None]
  - ELECTROCARDIOGRAM QT PROLONGED [None]
  - BODY TEMPERATURE DECREASED [None]
